FAERS Safety Report 11778115 (Version 1)
Quarter: 2015Q4

REPORT INFORMATION
  Report Type: Spontaneous
  Country: GB (occurrence: GB)
  Receive Date: 20151125
  Receipt Date: 20151125
  Transmission Date: 20160304
  Serious: Yes (Hospitalization)
  Sender: FDA-Public Use
  Company Number: PHHY2015GB153873

PATIENT
  Age: 18 Year
  Sex: Female

DRUGS (1)
  1. PARACETAMOL [Suspect]
     Active Substance: ACETAMINOPHEN
     Indication: PRODUCT USED FOR UNKNOWN INDICATION
     Dosage: 15 G, UNK
     Route: 065

REACTIONS (6)
  - Hepatic encephalopathy [Unknown]
  - Metabolic acidosis [Unknown]
  - Circulatory collapse [Unknown]
  - Acute hepatic failure [Unknown]
  - Renal failure [Unknown]
  - Overdose [Unknown]

NARRATIVE: CASE EVENT DATE: 201202
